FAERS Safety Report 8293010-8 (Version None)
Quarter: 2012Q2

REPORT INFORMATION
  Report Type: 
  Country: None (occurrence: None)
  Receive Date: 20120417
  Receipt Date: 20110930
  Transmission Date: 20120825
  Serious: No
  Sender: FDA-Public Use
  Company Number: US-ASTRAZENECA-2011SE24552

PATIENT
  Age: 61 Year
  Sex: Female
  Weight: 63 kg

DRUGS (3)
  1. NEXIUM [Suspect]
     Indication: GASTROOESOPHAGEAL REFLUX DISEASE
     Route: 048
     Dates: start: 20110601
  2. PRILOSEC OTC [Suspect]
     Route: 048
  3. ESTRADIOL [Concomitant]

REACTIONS (8)
  - HIATUS HERNIA [None]
  - LOSS OF EMPLOYMENT [None]
  - GASTROOESOPHAGEAL REFLUX DISEASE [None]
  - ADVERSE EVENT [None]
  - DYSPEPSIA [None]
  - DRUG INEFFECTIVE [None]
  - GASTROINTESTINAL DISORDER [None]
  - NASOPHARYNGITIS [None]
